FAERS Safety Report 5407300-7 (Version None)
Quarter: 2007Q3

REPORT INFORMATION
  Report Type: 
  Country: None (occurrence: None)
  Receive Date: 20070802
  Receipt Date: 20070719
  Transmission Date: 20080115
  Serious: Yes (Hospitalization)
  Sender: FDA-Public Use
  Company Number: 8025655

PATIENT
  Age: 62 Year
  Sex: Male

DRUGS (8)
  1. KEPPRA [Suspect]
     Indication: EPILEPSY
     Dosage: 500 MG 2/D PO
     Route: 048
     Dates: end: 20070601
  2. STOCRIN [Suspect]
     Indication: HIV INFECTION
     Dosage: 600 MG 1 /D PO
     Route: 048
     Dates: start: 20060101, end: 20070601
  3. PANTOZOL  /01263202/.  MFR: NOT SPECIFIED [Suspect]
     Indication: GASTRITIS
     Dosage: 40 MG 1 /D PO
     Route: 048
     Dates: end: 20070601
  4. 3TC [Suspect]
     Indication: HIV INFECTION
     Dosage: 300 MG 1/D PO
     Route: 048
     Dates: end: 20070601
  5. VIREAD [Suspect]
     Indication: HIV INFECTION
     Dosage: 245 MG 1/D PO
     Route: 048
     Dates: end: 20070601
  6. PRADIF [Suspect]
     Indication: BENIGN PROSTATIC HYPERPLASIA
     Dosage: 400 MG 1/D PO
     Route: 048
     Dates: end: 20070601
  7. DURAGESIC-100 [Suspect]
     Indication: PAIN
     Dosage: 1 DF 2/W TRD
     Route: 062
     Dates: end: 20070601
  8. VALCYTE [Suspect]
     Dosage: PO
     Route: 048
     Dates: end: 20070612

REACTIONS (7)
  - BENIGN PROSTATIC HYPERPLASIA [None]
  - CACHEXIA [None]
  - DERMATITIS EXFOLIATIVE [None]
  - EPILEPSY [None]
  - LUNG NEOPLASM [None]
  - OSTEOPOROSIS [None]
  - SPINAL COMPRESSION FRACTURE [None]
